FAERS Safety Report 19546025 (Version 1)
Quarter: 2021Q3

REPORT INFORMATION
  Report Type: Spontaneous
  Country: FR (occurrence: FR)
  Receive Date: 20210713
  Receipt Date: 20210713
  Transmission Date: 20211014
  Serious: Yes (Hospitalization)
  Sender: FDA-Public Use
  Company Number: FR-VERTEX PHARMACEUTICALS-2021-010259

PATIENT
  Age: 55 Year
  Sex: Female
  Weight: 38 kg

DRUGS (1)
  1. TRIKAFTA [Suspect]
     Active Substance: ELEXACAFTOR\IVACAFTOR\TEZACAFTOR
     Indication: CYSTIC FIBROSIS
     Dosage: ELEXACAFTOR 100MG TEZACAFTOR 50 MG AND IVACAFTOR 75 MG AND IVACAFTOR 150MG, UNKNOWN FREQUENCY
     Route: 048
     Dates: start: 20210104, end: 20210317

REACTIONS (1)
  - Lumbosacral plexopathy [Not Recovered/Not Resolved]

NARRATIVE: CASE EVENT DATE: 202103
